FAERS Safety Report 16052937 (Version 1)
Quarter: 2019Q1

REPORT INFORMATION
  Report Type: Spontaneous
  Country: US (occurrence: US)
  Receive Date: 20190308
  Receipt Date: 20190308
  Transmission Date: 20190418
  Serious: Yes (Other)
  Sender: FDA-Public Use
  Company Number: US-TOLMAR, INC.-TOLG20190123

PATIENT
  Age: 42 Year
  Sex: Male

DRUGS (1)
  1. ATRIDOX [Suspect]
     Active Substance: DOXYCYCLINE HYCLATE
     Indication: RASH FOLLICULAR
     Dosage: 100 MG
     Route: 065

REACTIONS (5)
  - Epistaxis [Unknown]
  - Pancytopenia [Not Recovered/Not Resolved]
  - Fatigue [Unknown]
  - Aplastic anaemia [Not Recovered/Not Resolved]
  - Bone marrow failure [Not Recovered/Not Resolved]
